FAERS Safety Report 9018305 (Version 1)
Quarter: 2013Q1

REPORT INFORMATION
  Report Type: Spontaneous
  Country: US (occurrence: None)
  Receive Date: 20130111
  Receipt Date: 20130111
  Transmission Date: 20140127
  Serious: No
  Sender: FDA-Public Use
  Company Number: None

PATIENT
  Age: 36 Year
  Sex: Female
  Weight: 90.7 kg

DRUGS (42)
  1. CRESTOR [Suspect]
     Indication: ACUTE RESPIRATORY DISTRESS SYNDROME
     Route: 048
     Dates: start: 20121123
  2. CRESTOR [Suspect]
     Indication: SEPSIS
     Route: 048
     Dates: start: 20121123
  3. CRESTOR [Suspect]
     Indication: ACUTE RESPIRATORY DISTRESS SYNDROME
     Route: 048
     Dates: start: 20121124
  4. CRESTOR [Suspect]
     Indication: SEPSIS
     Route: 048
     Dates: start: 20121124
  5. AZITHROMYCIN [Concomitant]
  6. AZTREONAM [Concomitant]
  7. LEVOFLOXACIN [Concomitant]
  8. MEROPANEM [Concomitant]
  9. TMP/SMX [Concomitant]
  10. VANCOMYCIN [Concomitant]
  11. ACETAMINOPHEN [Concomitant]
  12. ALBUTEROL + IPRATROPIUM [Concomitant]
  13. ALBUTEROL HFA INHALER [Concomitant]
  14. AMITRIPTYLINE [Concomitant]
  15. BENZONATATE [Concomitant]
  16. CALCIUM GLUCONATE [Concomitant]
  17. DULOXETINE [Concomitant]
  18. ENOXAPARIN [Concomitant]
  19. ETHACRYNATE SODIUM [Concomitant]
  20. FENTANYL [Concomitant]
  21. FLOCONAZOLE [Concomitant]
  22. FLUTICASONE-SALMETEROL [Concomitant]
  23. FUROSEMIDE [Concomitant]
  24. GABAPENTIN [Concomitant]
  25. HEPARIN [Concomitant]
  26. HYDROMORPHONE [Concomitant]
  27. HYDROXYCHLOROQUINE [Concomitant]
  28. INSULIN ASPART [Concomitant]
  29. IPRATROPIUM BROMIDE [Concomitant]
  30. IRON SUCROSE [Concomitant]
  31. ITRACONAZOLE [Concomitant]
  32. POTASSIUM CHLORIDE [Concomitant]
  33. LAMOTRIGINE [Concomitant]
  34. LIDOCAINE [Concomitant]
  35. LORAZEPAM [Concomitant]
  36. MAGNESIUM SULFATE [Concomitant]
  37. METHYLPREDNISOLONE [Concomitant]
  38. NIFEDIPINE [Concomitant]
  39. OLANZAPINE [Concomitant]
  40. OMEPRAZOLE [Concomitant]
  41. ONDANSETRON [Concomitant]
  42. PROPOFOL [Concomitant]

REACTIONS (6)
  - Hyperpyrexia [None]
  - Renal failure acute [None]
  - Rhabdomyolysis [None]
  - Compartment syndrome [None]
  - Alanine aminotransferase increased [None]
  - Blood creatine phosphokinase increased [None]
